FAERS Safety Report 9697847 (Version 1)
Quarter: 2013Q4

REPORT INFORMATION
  Report Type: Spontaneous
  Country: PH (occurrence: PH)
  Receive Date: 20131120
  Receipt Date: 20131120
  Transmission Date: 20140711
  Serious: Yes (Hospitalization)
  Sender: FDA-Public Use
  Company Number: PH-009507513-1311PHL006748

PATIENT
  Age: 63 Year
  Sex: Female

DRUGS (2)
  1. COZAAR [Suspect]
     Dosage: 1 DF, QD
     Route: 048
     Dates: start: 20121206
  2. AMLODIPINE [Concomitant]
     Dosage: PM

REACTIONS (5)
  - Fungal infection [Unknown]
  - Pruritus [Unknown]
  - Hypersensitivity [Unknown]
  - Blood pressure increased [Unknown]
  - Insomnia [Unknown]
